FAERS Safety Report 5471189-0 (Version None)
Quarter: 2007Q3

REPORT INFORMATION
  Report Type: 
  Country: None (occurrence: None)
  Receive Date: 20070928
  Receipt Date: 20070613
  Transmission Date: 20080115
  Serious: No
  Sender: FDA-Public Use
  Company Number: A0655911A

PATIENT
  Age: 31 Year
  Sex: Male

DRUGS (3)
  1. FLOVENT [Suspect]
     Route: 065
     Dates: start: 20070201
  2. TRICOR [Concomitant]
  3. PRILOSEC [Concomitant]

REACTIONS (5)
  - ABDOMINAL PAIN UPPER [None]
  - FLATULENCE [None]
  - GASTRIC DISORDER [None]
  - OFF LABEL USE [None]
  - THERAPEUTIC RESPONSE UNEXPECTED [None]
